FAERS Safety Report 6510925-9 (Version None)
Quarter: 2009Q4

REPORT INFORMATION
  Report Type: 
  Country: None (occurrence: None)
  Receive Date: 20091222
  Receipt Date: 20090203
  Transmission Date: 20100525
  Serious: No
  Sender: FDA-Public Use
  Company Number: US-ASTRAZENECA-2009UW03212

PATIENT
  Age: 67 Year
  Sex: Female
  Weight: 53.5 kg

DRUGS (3)
  1. CRESTOR [Suspect]
     Indication: HYPERCHOLESTEROLAEMIA
     Route: 048
     Dates: start: 20081117, end: 20090123
  2. ACTONEL [Concomitant]
  3. VYTORIN [Concomitant]

REACTIONS (2)
  - RASH [None]
  - SWELLING FACE [None]
